FAERS Safety Report 11171467 (Version 1)
Quarter: 2015Q2

REPORT INFORMATION
  Report Type: Spontaneous
  Country: US (occurrence: None)
  Receive Date: 20150605
  Receipt Date: 20150605
  Transmission Date: 20150821
  Serious: Yes (Other)
  Sender: FDA-Public Use
  Company Number: None

PATIENT
  Age: 48 Year
  Sex: Male

DRUGS (1)
  1. HUMIRA [Suspect]
     Active Substance: ADALIMUMAB
     Dates: start: 20150415, end: 20150514

REACTIONS (4)
  - Hypoaesthesia [None]
  - Eye disorder [None]
  - Paraesthesia [None]
  - Arthritis [None]

NARRATIVE: CASE EVENT DATE: 20150515
